FAERS Safety Report 13754678 (Version 1)
Quarter: 2017Q3

REPORT INFORMATION
  Report Type: Spontaneous
  Country: US (occurrence: US)
  Receive Date: 20170714
  Receipt Date: 20170714
  Transmission Date: 20171127
  Serious: No
  Sender: FDA-Public Use
  Company Number: US-BEH-2017082038

PATIENT
  Age: 61 Year
  Sex: Female

DRUGS (2)
  1. HIZENTRA [Suspect]
     Active Substance: HUMAN IMMUNOGLOBULIN G
     Indication: HYPOGAMMAGLOBULINAEMIA
     Dosage: 9 G (45 ML), QW
     Route: 058
     Dates: start: 20170228
  2. HIZENTRA [Suspect]
     Active Substance: HUMAN IMMUNOGLOBULIN G
     Dosage: UNK
     Route: 058
     Dates: start: 20170709, end: 20170709

REACTIONS (4)
  - Infusion site erythema [Unknown]
  - Infusion site pain [Unknown]
  - Infusion site haemorrhage [Unknown]
  - Infusion site swelling [Unknown]

NARRATIVE: CASE EVENT DATE: 20170709
